FAERS Safety Report 22521429 (Version 1)
Quarter: 2023Q2

REPORT INFORMATION
  Report Type: Spontaneous
  Country: US (occurrence: None)
  Receive Date: 20230602
  Receipt Date: 20230602
  Transmission Date: 20230722
  Serious: No
  Sender: FDA-Public Use
  Company Number: None

PATIENT
  Sex: Female

DRUGS (28)
  1. VERZENIO [Suspect]
     Active Substance: ABEMACICLIB
     Indication: Breast cancer female
     Dosage: FREQUENCY : TWICE A DAY;?
     Route: 048
  2. CELECOXIB [Concomitant]
     Active Substance: CELECOXIB
  3. CHOLECALFICEROL [Concomitant]
  4. DICLOFENAC [Concomitant]
     Active Substance: DICLOFENAC
  5. FASLODEX [Concomitant]
     Active Substance: FULVESTRANT
  6. FENTANYL [Concomitant]
     Active Substance: FENTANYL
  7. FERROUS SULFATE [Concomitant]
  8. GABAPENTIN [Concomitant]
     Active Substance: GABAPENTIN
  9. HYDROMORPHONE [Concomitant]
     Active Substance: HYDROMORPHONE
  10. LACTULOSE [Concomitant]
     Active Substance: LACTULOSE
  11. LASIX [Concomitant]
     Active Substance: FUROSEMIDE
  12. LEVOTHYROXINE [Concomitant]
     Active Substance: LEVOTHYROXINE
  13. LIDOCAINE [Concomitant]
     Active Substance: LIDOCAINE
  14. MELATONIN [Concomitant]
     Active Substance: MELATONIN
  15. METOPROLOL [Concomitant]
     Active Substance: METOPROLOL
  16. VITAMINS [Concomitant]
     Active Substance: VITAMINS
  17. NALOXONE [Concomitant]
     Active Substance: NALOXONE
  18. NEURONTIN [Concomitant]
     Active Substance: GABAPENTIN
  19. PEPCID [Concomitant]
     Active Substance: FAMOTIDINE
  20. PLYETHYLENE GLYCOL [Concomitant]
  21. PROCHLORPERAZINE [Concomitant]
  22. SENNA [Concomitant]
  23. SENNOSIDES [Concomitant]
     Active Substance: SENNOSIDES
  24. SIMEHTICONE [Concomitant]
  25. THIAMINE HYDROCHLORIDE [Concomitant]
     Active Substance: THIAMINE HYDROCHLORIDE
  26. VOLTARE [Concomitant]
  27. XARELTO [Concomitant]
     Active Substance: RIVAROXABAN
  28. ZOFRAN [Concomitant]

REACTIONS (1)
  - Hospice care [None]
